FAERS Safety Report 10916376 (Version 1)
Quarter: 2015Q1

REPORT INFORMATION
  Report Type: Spontaneous
  Country: CA (occurrence: CA)
  Receive Date: 20150316
  Receipt Date: 20150316
  Transmission Date: 20150721
  Serious: Yes (Other)
  Sender: FDA-Public Use
  Company Number: CA-GLAXOSMITHKLINE-CA2015032858

PATIENT
  Age: 25 Year
  Sex: Male
  Weight: 95.26 kg

DRUGS (3)
  1. NICODERM CQ [Suspect]
     Active Substance: NICOTINE
     Indication: EX-TOBACCO USER
     Route: 065
  2. NICORETTE [Suspect]
     Active Substance: NICOTINE
     Indication: EX-TOBACCO USER
     Route: 048
  3. NICORETTE [Suspect]
     Active Substance: NICOTINE
     Indication: EX-TOBACCO USER
     Dosage: DOSAGE FORM: INHALATION
     Route: 055

REACTIONS (5)
  - Drug administration error [Unknown]
  - Loss of consciousness [Unknown]
  - Visual impairment [Unknown]
  - Overdose [Unknown]
  - Vomiting [Unknown]
